FAERS Safety Report 20315009 (Version 1)
Quarter: 2022Q1

REPORT INFORMATION
  Report Type: Other
  Country: US (occurrence: None)
  Receive Date: 20220110
  Receipt Date: 20220110
  Transmission Date: 20220423
  Serious: Yes (Other)
  Sender: FDA-Public Use
  Company Number: US-ROCHE-2740900

PATIENT
  Age: 48 Year
  Sex: Male
  Weight: 61.5 kg

DRUGS (32)
  1. RITUXIMAB [Suspect]
     Active Substance: RITUXIMAB
     Indication: Diffuse large B-cell lymphoma
     Route: 065
  2. CYCLOPHOSPHAMIDE [Suspect]
     Active Substance: CYCLOPHOSPHAMIDE
     Indication: Diffuse large B-cell lymphoma
     Route: 065
  3. DOXORUBICIN [Suspect]
     Active Substance: DOXORUBICIN
     Indication: Diffuse large B-cell lymphoma
     Route: 065
  4. VINCRISTINE [Suspect]
     Active Substance: VINCRISTINE
     Indication: Diffuse large B-cell lymphoma
     Route: 065
  5. PREDNISONE [Suspect]
     Active Substance: PREDNISONE
     Indication: Diffuse large B-cell lymphoma
     Route: 065
  6. CISPLATIN [Suspect]
     Active Substance: CISPLATIN
     Indication: Diffuse large B-cell lymphoma
     Route: 065
  7. DEXAMETHASONE [Suspect]
     Active Substance: DEXAMETHASONE
     Indication: Diffuse large B-cell lymphoma
     Route: 065
  8. METHYLPREDNISOLONE [Suspect]
     Active Substance: METHYLPREDNISOLONE
     Indication: Diffuse large B-cell lymphoma
     Route: 042
  9. GEMCITABINE [Concomitant]
     Active Substance: GEMCITABINE
  10. CARMUSTINE [Concomitant]
     Active Substance: CARMUSTINE
  11. CYTARABINE [Concomitant]
     Active Substance: CYTARABINE
  12. ETOPOSIDE [Concomitant]
     Active Substance: ETOPOSIDE
  13. MELPHALAN [Concomitant]
     Active Substance: MELPHALAN
  14. ENOXAPARIN SODIUM [Concomitant]
     Active Substance: ENOXAPARIN SODIUM
  15. BLINATUMOMAB [Concomitant]
     Active Substance: BLINATUMOMAB
  16. PEMBROLIZUMAB [Concomitant]
     Active Substance: PEMBROLIZUMAB
  17. METHADONE [Concomitant]
     Active Substance: METHADONE HYDROCHLORIDE
  18. MORPHINE SULFATE [Concomitant]
     Active Substance: MORPHINE SULFATE
  19. ACYCLOVIR [Concomitant]
     Active Substance: ACYCLOVIR
  20. SULFAMETHOXAZOLE\TRIMETHOPRIM [Concomitant]
     Active Substance: SULFAMETHOXAZOLE\TRIMETHOPRIM
  21. NYSTATIN [Concomitant]
     Active Substance: NYSTATIN
     Route: 048
  22. CITALOPRAM [Concomitant]
     Active Substance: CITALOPRAM HYDROBROMIDE
  23. OMEPRAZOLE [Concomitant]
     Active Substance: OMEPRAZOLE
  24. SIMETHICONE (DIMETHICONE) [Concomitant]
     Active Substance: DIMETHICONE
  25. LORAZEPAM [Concomitant]
     Active Substance: LORAZEPAM
  26. MORPHINE [Concomitant]
     Active Substance: MORPHINE
     Route: 042
  27. CEFEPIME [Concomitant]
     Active Substance: CEFEPIME HYDROCHLORIDE
     Route: 042
  28. MEPERIDINE [Concomitant]
     Active Substance: MEPERIDINE
     Route: 042
  29. METRONIDAZOLE [Concomitant]
     Active Substance: METRONIDAZOLE
     Route: 048
  30. ACETAMINOPHEN [Concomitant]
     Active Substance: ACETAMINOPHEN
     Route: 048
  31. FENTANYL [Concomitant]
     Active Substance: FENTANYL
  32. FILGRASTIM [Concomitant]
     Active Substance: FILGRASTIM

REACTIONS (3)
  - Disseminated cryptococcosis [Unknown]
  - Pneumonia [Unknown]
  - Fungal infection [Unknown]
